FAERS Safety Report 6915744-7 (Version None)
Quarter: 2010Q3

REPORT INFORMATION
  Report Type: 
  Country: None (occurrence: None)
  Receive Date: 20100810
  Receipt Date: 20100317
  Transmission Date: 20110219
  Serious: No
  Sender: FDA-Public Use
  Company Number: A0850661A

PATIENT
  Age: 42 Year
  Sex: Female

DRUGS (4)
  1. PAXIL CR [Suspect]
     Dosage: 37.5MG PER DAY
     Route: 048
  2. ALPRAZOLAM [Concomitant]
  3. STRATTERA [Concomitant]
  4. CORTISONE [Concomitant]

REACTIONS (5)
  - EPISTAXIS [None]
  - HEADACHE [None]
  - IRRITABILITY [None]
  - MENTAL IMPAIRMENT [None]
  - RESTLESSNESS [None]
